FAERS Safety Report 17319503 (Version 1)
Quarter: 2020Q1

REPORT INFORMATION
  Report Type: Spontaneous
  Country: US (occurrence: US)
  Receive Date: 20200125
  Receipt Date: 20200125
  Transmission Date: 20200409
  Serious: No
  Sender: FDA-Public Use
  Company Number: US-JNJFOC-20200112389

PATIENT
  Sex: Female
  Weight: 59.02 kg

DRUGS (1)
  1. TYLENOL 8HR [Suspect]
     Active Substance: ACETAMINOPHEN
     Indication: FRACTURE PAIN
     Dosage: 2 CAPLETS EVERY 8 HR
     Route: 048
     Dates: start: 20200105

REACTIONS (1)
  - Drug ineffective [Unknown]
